FAERS Safety Report 18922013 (Version 1)
Quarter: 2021Q1

REPORT INFORMATION
  Report Type: Spontaneous
  Country: US (occurrence: US)
  Receive Date: 20210220
  Receipt Date: 20210220
  Transmission Date: 20210420
  Serious: Yes (Hospitalization)
  Sender: FDA-Public Use
  Company Number: None

PATIENT
  Age: 65 Year
  Sex: Male
  Weight: 98 kg

DRUGS (2)
  1. BEVACIZUMAB. [Suspect]
     Active Substance: BEVACIZUMAB
     Dates: end: 20201209
  2. DOXIL [Suspect]
     Active Substance: DOXORUBICIN HYDROCHLORIDE
     Dates: end: 20210106

REACTIONS (15)
  - Pyrexia [None]
  - Muscular weakness [None]
  - Disease progression [None]
  - Back pain [None]
  - Feeling cold [None]
  - Metastasis [None]
  - Neuropathy peripheral [None]
  - Central nervous system lesion [None]
  - Vomiting [None]
  - Hyponatraemia [None]
  - Fall [None]
  - Balance disorder [None]
  - Nausea [None]
  - Resting tremor [None]
  - Metastases to meninges [None]

NARRATIVE: CASE EVENT DATE: 20210206
